FAERS Safety Report 9496477 (Version 1)
Quarter: 2013Q3

REPORT INFORMATION
  Report Type: Spontaneous
  Country: RU (occurrence: RU)
  Receive Date: 20130904
  Receipt Date: 20130904
  Transmission Date: 20140515
  Serious: Yes (Hospitalization)
  Sender: FDA-Public Use
  Company Number: PHHY2013RU096574

PATIENT
  Age: 78 Year
  Sex: Male

DRUGS (1)
  1. AFINITOR [Suspect]
     Dosage: 0.01 ONCE DAY
     Dates: start: 20130717, end: 20130803

REACTIONS (4)
  - Haemorrhage [Recovered/Resolved]
  - Gastric ulcer [Recovered/Resolved]
  - Asthenia [Unknown]
  - Haematochezia [Unknown]
